FAERS Safety Report 23715519 (Version 3)
Quarter: 2024Q2

REPORT INFORMATION
  Report Type: Report from Study
  Country: BE (occurrence: BE)
  Receive Date: 20240407
  Receipt Date: 20240601
  Transmission Date: 20240716
  Serious: Yes (Hospitalization)
  Sender: FDA-Public Use
  Company Number: BE-ABBVIE-5708121

PATIENT
  Age: 74 Year
  Sex: Male
  Weight: 81 kg

DRUGS (8)
  1. CARBIDOPA\LEVODOPA [Suspect]
     Active Substance: CARBIDOPA\LEVODOPA
     Indication: Parkinson^s disease
     Dosage: MD: 10.0 ML, CD: 4.5 ML/H, ED: 5.0 ML DURING 16 HOURS
     Route: 050
     Dates: start: 20240208, end: 20240209
  2. CARBIDOPA\LEVODOPA [Suspect]
     Active Substance: CARBIDOPA\LEVODOPA
     Dosage: MD: 9.0 ML, CD: 4.5 ML/H, ED: 5.0 ML DURING 16 HOURS
     Route: 050
     Dates: start: 20240209, end: 20240221
  3. CARBIDOPA\LEVODOPA [Suspect]
     Active Substance: CARBIDOPA\LEVODOPA
     Dosage: MD: 10.0+3.0 ML, CD: 4.7 ML/H, ED: 5.0 ML, CND: 4.7 ML DURING 16 HOURS
     Route: 050
     Dates: start: 20240221
  4. STALEVO [Concomitant]
     Active Substance: CARBIDOPA\ENTACAPONE\LEVODOPA
     Indication: Product used for unknown indication
     Dosage: TIME INTERVAL: 0.33333333 DAYS: 150 MILLIGRAM
     Route: 048
  5. STALEVO [Concomitant]
     Active Substance: CARBIDOPA\ENTACAPONE\LEVODOPA
     Indication: Product used for unknown indication
     Route: 048
  6. XADAGO [Concomitant]
     Active Substance: SAFINAMIDE MESYLATE
     Indication: Product used for unknown indication
     Route: 048
  7. BENSERAZIDE\LEVODOPA [Concomitant]
     Active Substance: BENSERAZIDE\LEVODOPA
     Indication: Product used for unknown indication
     Dosage: ONCE IN THE EVENING
     Route: 048
  8. QUETIAPINE [Concomitant]
     Active Substance: QUETIAPINE
     Indication: Hallucination
     Dosage: FORM STRENGTH: 25 MILLIGRAM?FREQUENCY TEXT: 0.5-1 (MAXIMUM )TABLET PER DAY

REACTIONS (8)
  - Pyrexia [Unknown]
  - Bronchitis [Unknown]
  - Hallucination [Unknown]
  - Gait inability [Recovering/Resolving]
  - Incontinence [Not Recovered/Not Resolved]
  - Pneumonia [Unknown]
  - Fatigue [Not Recovered/Not Resolved]
  - Urinary tract infection [Unknown]

NARRATIVE: CASE EVENT DATE: 20240101
